FAERS Safety Report 5976628-4 (Version None)
Quarter: 2008Q4

REPORT INFORMATION
  Report Type: 
  Country: None (occurrence: None)
  Receive Date: 20081202
  Receipt Date: 20081202
  Transmission Date: 20090506
  Serious: Yes (Other)
  Sender: FDA-Public Use
  Company Number: None

PATIENT
  Sex: Female
  Weight: 57.1532 kg

DRUGS (1)
  1. CAPZASIN 0.1% CHATTEM [Suspect]
     Indication: ARTHRALGIA
     Dosage: ONE DIME-SIZED ^DAB^ ONCE TOP
     Route: 061
     Dates: start: 20081129, end: 20081129

REACTIONS (5)
  - BURNING SENSATION [None]
  - EYE BURNS [None]
  - INSOMNIA [None]
  - MEDICATION ERROR [None]
  - THERMAL BURN [None]
